FAERS Safety Report 4395274-X (Version None)
Quarter: 2004Q3

REPORT INFORMATION
  Report Type: 
  Country: None (occurrence: None)
  Receive Date: 20040706
  Receipt Date: 20040622
  Transmission Date: 20050211
  Serious: Yes (Congenital Anomaly)
  Sender: FDA-Public Use
  Company Number: 04P-056-0265288-00

PATIENT

DRUGS (1)
  1. KALETRA [Suspect]

REACTIONS (5)
  - CEREBRAL VENTRICLE DILATATION [None]
  - DRUG EXPOSURE DURING PREGNANCY [None]
  - GASTROINTESTINAL DISORDER [None]
  - POLYHYDRAMNIOS [None]
  - ULTRASOUND ANTENATAL SCREEN ABNORMAL [None]
